FAERS Safety Report 6828167-6 (Version None)
Quarter: 2010Q3

REPORT INFORMATION
  Report Type: 
  Country: None (occurrence: None)
  Receive Date: 20100709
  Receipt Date: 20100630
  Transmission Date: 20110219
  Serious: Yes (Hospitalization, Other)
  Sender: FDA-Public Use
  Company Number: US-ROCHE-695944

PATIENT
  Sex: Male
  Weight: 83.9 kg

DRUGS (3)
  1. ACCUTANE [Suspect]
     Route: 048
     Dates: start: 19910522, end: 19910603
  2. ACCUTANE [Suspect]
     Route: 048
     Dates: start: 19910610, end: 19911113
  3. ACCUTANE [Suspect]
     Route: 048
     Dates: start: 19980130, end: 19980611

REACTIONS (15)
  - ANAL FISSURE [None]
  - BACK PAIN [None]
  - CHEILITIS [None]
  - COLITIS ULCERATIVE [None]
  - CONTUSION [None]
  - CROHN'S DISEASE [None]
  - DEPRESSION [None]
  - EYE INFECTION STAPHYLOCOCCAL [None]
  - INFLAMMATORY BOWEL DISEASE [None]
  - MYALGIA [None]
  - PANCREATITIS ACUTE [None]
  - STOMATITIS [None]
  - THROMBOSIS [None]
  - TINEA INFECTION [None]
  - VISION BLURRED [None]
